FAERS Safety Report 18455835 (Version 8)
Quarter: 2022Q3

REPORT INFORMATION
  Report Type: Report from Study
  Country: CN (occurrence: None)
  Receive Date: 20201102
  Receipt Date: 20220729
  Transmission Date: 20221027
  Serious: Yes (Hospitalization)
  Sender: FDA-Public Use
  Company Number: CN-ROCHE-2704022

PATIENT
  Age: 47 Year
  Sex: Female
  Weight: 52 kg

DRUGS (27)
  1. ATEZOLIZUMAB [Suspect]
     Active Substance: ATEZOLIZUMAB
     Indication: Non-small cell lung cancer
     Dosage: DAY 1 OF EACH 21-DAY CYCLE UNTIL UNACCEPTABLE TOXICITY OR LOSS OF CLINICAL BENEFIT?ON 09/OCT/2020, S
     Route: 042
     Dates: start: 20200525
  2. CARBOPLATIN [Suspect]
     Active Substance: CARBOPLATIN
     Indication: Non-small cell lung cancer
     Dosage: INITIAL TARGET AUC OF 6 MG/ML/MIN.?ON 05/AUG/2020, SHE RECEIVED MOST RECENT DOSE (554 MG) OF CARBOPL
     Route: 042
     Dates: start: 20200525
  3. PEMETREXED [Suspect]
     Active Substance: PEMETREXED
     Indication: Non-small cell lung cancer
     Dosage: ON 09/OCT/2020, SHE RECEIVED MOST RECENT DOSE (624 MG) OF STUDY DRUG PRIOR TO AE/SAE ONSET
     Route: 042
     Dates: start: 20200525
  4. BEVACIZUMAB [Suspect]
     Active Substance: BEVACIZUMAB
     Indication: Non-small cell lung cancer
     Dosage: DAY 1 OF EACH 21-DAY CYCLE.?ON 09/OCT/2020, SHE RECEIVED MOST RECENT DOSE (795 MG) OF BEVACIZUMAB PR
     Route: 042
     Dates: start: 20200525
  5. COMPOUND PLATYCODON [Concomitant]
     Indication: Cough
     Dates: start: 20200507
  6. LANSOPRAZOLE [Concomitant]
     Active Substance: LANSOPRAZOLE
     Indication: Prophylaxis
     Dates: start: 20200805, end: 20201020
  7. DEXAMETHASONE ACETATE [Concomitant]
     Active Substance: DEXAMETHASONE ACETATE
     Indication: Allergy prophylaxis
     Route: 048
     Dates: start: 20201008, end: 20201011
  8. PALONOSETRON HYDROCHLORIDE [Concomitant]
     Active Substance: PALONOSETRON HYDROCHLORIDE
     Indication: Vomiting
     Dates: start: 20201009, end: 20201009
  9. PALONOSETRON HYDROCHLORIDE [Concomitant]
     Active Substance: PALONOSETRON HYDROCHLORIDE
     Dates: start: 20201030, end: 20201030
  10. OMEPRAZOLE SODIUM [Concomitant]
     Active Substance: OMEPRAZOLE SODIUM
     Dates: start: 20201009, end: 20201009
  11. OMEPRAZOLE SODIUM [Concomitant]
     Active Substance: OMEPRAZOLE SODIUM
     Dates: start: 20201029, end: 20201113
  12. PEGYLATED RECOMBINANT HUMAN GRANULOCYTE COLONY STIMULATING FACTOR [Concomitant]
     Dates: start: 20201011, end: 20201011
  13. HEPARIN SODIUM [Concomitant]
     Active Substance: HEPARIN SODIUM
     Indication: Prophylaxis
     Dates: start: 20201027, end: 20201028
  14. ACETAMINOPHEN\TRAMADOL [Concomitant]
     Active Substance: ACETAMINOPHEN\TRAMADOL
     Indication: Analgesic therapy
     Dates: start: 20201029, end: 20201113
  15. MORPHINE HYDROCHLORIDE [Concomitant]
     Active Substance: MORPHINE HYDROCHLORIDE
     Indication: Analgesic therapy
     Dates: start: 20201030, end: 20201113
  16. MANNITOL [Concomitant]
     Active Substance: MANNITOL
     Indication: Oedema
     Dates: start: 20201030, end: 20201113
  17. LIDOCAINE HYDROCHLORIDE [Concomitant]
     Active Substance: LIDOCAINE HYDROCHLORIDE
     Indication: Local anaesthesia
     Dates: start: 20201028, end: 20201028
  18. BUCINNAZINE HYDROCHLORIDE [Concomitant]
     Indication: Analgesic therapy
     Dates: start: 20201030, end: 20201030
  19. RACEANISODAMINE HYDROCHLORIDE [Concomitant]
     Indication: Analgesic therapy
     Dates: start: 20201029, end: 20201029
  20. METOCLOPRAMIDE DIHYDROCHLORIDE [Concomitant]
     Indication: Vomiting
     Dates: start: 20201030, end: 20201030
  21. AMBROXOL HYDROCHLORIDE [Concomitant]
     Active Substance: AMBROXOL HYDROCHLORIDE
     Indication: Cough
     Dates: start: 20201027, end: 20201112
  22. AMBROXOL HYDROCHLORIDE [Concomitant]
     Active Substance: AMBROXOL HYDROCHLORIDE
     Indication: Productive cough
  23. COMPOUND PLATYCODON [Concomitant]
     Indication: Cough
  24. LACTULOSE [Concomitant]
     Active Substance: LACTULOSE
     Indication: Constipation
     Dates: start: 20201031, end: 20201031
  25. AMINO ACIDS, SOURCE UNSPECIFIED [Concomitant]
     Active Substance: AMINO ACIDS, SOURCE UNSPECIFIED
     Indication: Prophylaxis
     Dates: start: 20201029, end: 20201113
  26. FISH OIL [Concomitant]
     Active Substance: FISH OIL
     Dosage: FISH OIL WHOLE PROTEIN COMPLEX NUTRITIONAL?EMULSION
     Dates: start: 20201029, end: 20201029
  27. CARRIZUMAB [Concomitant]
     Dates: start: 20201106, end: 20201106

REACTIONS (1)
  - Epistaxis [Recovered/Resolved]

NARRATIVE: CASE EVENT DATE: 20201023
